FAERS Safety Report 6702027-3 (Version None)
Quarter: 2010Q2

REPORT INFORMATION
  Report Type: 
  Country: None (occurrence: None)
  Receive Date: 20100429
  Receipt Date: 20100419
  Transmission Date: 20101027
  Serious: Yes (Other)
  Sender: FDA-Public Use
  Company Number: US-PFIZER INC-2010049993

PATIENT
  Sex: Male
  Weight: 102 kg

DRUGS (2)
  1. CHANTIX [Suspect]
     Indication: SMOKING CESSATION THERAPY
     Dosage: 0.5 MG, 1X/DAY
     Route: 048
     Dates: start: 20100416, end: 20100417
  2. ROBAXIN [Concomitant]
     Indication: ARTHRITIS
     Dosage: UNK

REACTIONS (3)
  - HALLUCINATION [None]
  - HALLUCINATION, AUDITORY [None]
  - SOMNOLENCE [None]
